FAERS Safety Report 24532248 (Version 2)
Quarter: 2024Q4

REPORT INFORMATION
  Report Type: Spontaneous
  Country: CH (occurrence: CH)
  Receive Date: 20241022
  Receipt Date: 20241029
  Transmission Date: 20250114
  Serious: Yes (Life-Threatening, Hospitalization, Disabling, Other)
  Sender: ACCORD
  Company Number: CH-Accord-451644

PATIENT
  Age: 62 Year
  Sex: Female

DRUGS (2)
  1. CARBOPLATIN [Suspect]
     Active Substance: CARBOPLATIN
     Indication: Triple negative breast cancer
  2. PACLITAXEL [Suspect]
     Active Substance: PACLITAXEL
     Indication: Triple negative breast cancer

REACTIONS (11)
  - Febrile neutropenia [Recovered/Resolved]
  - Gas gangrene [Recovered/Resolved]
  - Clostridial infection [Recovered/Resolved]
  - Pseudomonas infection [Recovered/Resolved]
  - Escherichia infection [Recovered/Resolved]
  - Enterococcal infection [Recovered/Resolved]
  - Candida infection [Recovered/Resolved]
  - Haemodynamic instability [Recovered/Resolved]
  - Septic shock [Recovered/Resolved]
  - Bone marrow failure [Unknown]
  - Neutropenic colitis [Unknown]
